FAERS Safety Report 21670084 (Version 1)
Quarter: 2022Q4

REPORT INFORMATION
  Report Type: Spontaneous
  Country: CN (occurrence: CN)
  Receive Date: 20221201
  Receipt Date: 20221201
  Transmission Date: 20230112
  Serious: Yes (Life-Threatening, Hospitalization, Other)
  Sender: FDA-Public Use
  Company Number: CN-009507513-2211CHN008892

PATIENT
  Age: 47 Year
  Sex: Female
  Weight: 64 kg

DRUGS (3)
  1. NOXAFIL [Suspect]
     Active Substance: POSACONAZOLE
     Indication: Pneumonia fungal
     Dosage: 5 MILLILITER, Q8H (ALSO REPORTED AS QD)
     Route: 048
     Dates: start: 20221018, end: 20221027
  2. NOXAFIL [Suspect]
     Active Substance: POSACONAZOLE
     Dosage: 5 MILLILITER, Q6H
     Route: 048
     Dates: start: 20221027, end: 20221106
  3. AMPHOTERICIN B [Concomitant]
     Active Substance: AMPHOTERICIN B
     Indication: Pneumonia fungal
     Dosage: UNK

REACTIONS (4)
  - Myocardial ischaemia [Recovering/Resolving]
  - Swelling face [Recovering/Resolving]
  - Oedema peripheral [Recovering/Resolving]
  - Product use in unapproved indication [Unknown]

NARRATIVE: CASE EVENT DATE: 20221018
